FAERS Safety Report 25433290 (Version 3)
Quarter: 2025Q2

REPORT INFORMATION
  Report Type: Spontaneous
  Country: DE (occurrence: DE)
  Receive Date: 20250613
  Receipt Date: 20250624
  Transmission Date: 20250716
  Serious: Yes (Hospitalization)
  Sender: Haleon PLC
  Company Number: DE-SANDOZ-SDZ2025DE039777

PATIENT
  Sex: Male

DRUGS (8)
  1. DICLOFENAC [Suspect]
     Active Substance: DICLOFENAC
     Indication: Axial spondyloarthritis
     Dates: start: 20230320, end: 20240110
  2. DICLOFENAC [Suspect]
     Active Substance: DICLOFENAC
     Dates: start: 20211119
  3. IBUPROFEN [Suspect]
     Active Substance: IBUPROFEN
     Indication: Axial spondyloarthritis
     Dates: start: 20210130, end: 20211115
  4. HYRIMOZ [Suspect]
     Active Substance: ADALIMUMAB-ADAZ
     Indication: Axial spondyloarthritis
     Dates: start: 20200723, end: 20200806
  5. HYRIMOZ [Suspect]
     Active Substance: ADALIMUMAB-ADAZ
     Dates: start: 20201105, end: 20210915
  6. IDACIO [Suspect]
     Active Substance: ADALIMUMAB-AACF
     Indication: Axial spondyloarthritis
     Dates: start: 20200820, end: 20201022
  7. NAPROXEN [Suspect]
     Active Substance: NAPROXEN
     Indication: Axial spondyloarthritis
  8. NAPROXEN [Suspect]
     Active Substance: NAPROXEN
     Dates: start: 20240111

REACTIONS (1)
  - Axial spondyloarthritis [Unknown]

NARRATIVE: CASE EVENT DATE: 20240228
